FAERS Safety Report 10202675 (Version 3)
Quarter: 2014Q2

REPORT INFORMATION
  Report Type: Spontaneous
  Country: US (occurrence: US)
  Receive Date: 20140528
  Receipt Date: 20140626
  Transmission Date: 20141212
  Serious: Yes (Other)
  Sender: FDA-Public Use
  Company Number: CHPA2014US007103

PATIENT
  Age: 77 Year
  Sex: Female

DRUGS (6)
  1. VOLTAREN GEL [Suspect]
     Indication: OSTEOARTHRITIS
     Dosage: LITTLE AMOUNT, UNK
     Route: 061
     Dates: start: 2009
  2. VOLTAREN GEL [Suspect]
     Indication: MUSCULOSKELETAL PAIN
     Dosage: LITTLE AMOUNT, UNK
     Route: 061
  3. VOLTAREN GEL [Suspect]
     Indication: BACK PAIN
  4. VOLTAREN GEL [Suspect]
     Indication: OFF LABEL USE
  5. LORAZEPAM [Concomitant]
     Indication: ANXIETY
     Dosage: UNK
  6. METOPROLOL [Concomitant]
     Indication: BLOOD PRESSURE ABNORMAL
     Dosage: 25 MG, BID

REACTIONS (7)
  - Fracture [Recovered/Resolved]
  - Arthralgia [Recovered/Resolved]
  - Ligament sprain [Recovering/Resolving]
  - Back pain [Recovered/Resolved]
  - Drug dispensed to wrong patient [Unknown]
  - Drug administered at inappropriate site [Unknown]
  - Wrong technique in drug usage process [Unknown]
